FAERS Safety Report 23535833 (Version 4)
Quarter: 2024Q1

REPORT INFORMATION
  Report Type: Other
  Country: US (occurrence: None)
  Receive Date: 20240218
  Receipt Date: 20240228
  Transmission Date: 20240410
  Serious: Yes (Other)
  Sender: FDA-Public Use
  Company Number: US-ROCHE-3509321

PATIENT
  Age: 56 Year
  Sex: Female
  Weight: 81.72 kg

DRUGS (2)
  1. OCREVUS [Suspect]
     Active Substance: OCRELIZUMAB
     Indication: Relapsing-remitting multiple sclerosis
     Dosage: SALINE 240 ML.
     Route: 042
     Dates: start: 20240122
  2. OCREVUS [Suspect]
     Active Substance: OCRELIZUMAB
     Indication: Primary progressive multiple sclerosis

REACTIONS (6)
  - Herpes zoster [Recovering/Resolving]
  - Erythema [Recovered/Resolved]
  - Pruritus [Recovered/Resolved]
  - Throat tightness [Recovered/Resolved]
  - Heart rate increased [Recovered/Resolved]
  - Blood pressure increased [Recovered/Resolved]

NARRATIVE: CASE EVENT DATE: 20240122
